FAERS Safety Report 9375022 (Version 1)
Quarter: 2013Q2

REPORT INFORMATION
  Report Type: Spontaneous
  Country: CN (occurrence: CN)
  Receive Date: 20130628
  Receipt Date: 20130628
  Transmission Date: 20140414
  Serious: Yes (Other)
  Sender: FDA-Public Use
  Company Number: CN-ABBOTT-13X-035-1107892-00

PATIENT
  Sex: Female

DRUGS (1)
  1. TERAZOSIN [Suspect]
     Indication: CARDIOVASCULAR DISORDER
     Dates: start: 20120524, end: 20120603

REACTIONS (2)
  - Alanine aminotransferase increased [Recovering/Resolving]
  - Hepatic function abnormal [Recovering/Resolving]
